FAERS Safety Report 7075907-X (Version None)
Quarter: 2010Q4

REPORT INFORMATION
  Report Type: 
  Country: None (occurrence: None)
  Receive Date: 20101101
  Receipt Date: 20101021
  Transmission Date: 20110411
  Serious: No
  Sender: FDA-Public Use
  Company Number: US-BIOGENIDEC-2010BI037179

PATIENT
  Age: 47 Year
  Sex: Female

DRUGS (2)
  1. TYSABRI [Suspect]
     Indication: MULTIPLE SCLEROSIS
     Route: 042
     Dates: start: 20080101
  2. COPAXONE [Concomitant]

REACTIONS (8)
  - DRY SKIN [None]
  - EYE DISORDER [None]
  - FATIGUE [None]
  - LOWER EXTREMITY MASS [None]
  - MASS [None]
  - PRURITUS GENERALISED [None]
  - SENSORY DISTURBANCE [None]
  - URTICARIA [None]
